FAERS Safety Report 6301967-7 (Version None)
Quarter: 2009Q3

REPORT INFORMATION
  Report Type: 
  Country: None (occurrence: None)
  Receive Date: 20090807
  Receipt Date: 20090728
  Transmission Date: 20100115
  Serious: Yes (Other)
  Sender: FDA-Public Use
  Company Number: PHHY2009BR31856

PATIENT
  Sex: Female

DRUGS (2)
  1. GENTEAL (NVO) [Suspect]
     Indication: DRY EYE
     Dosage: 2 TIMES A DAY
     Route: 061
  2. GENTEAL (NVO) [Suspect]
     Dosage: UNK
     Route: 047
     Dates: start: 20060101

REACTIONS (3)
  - CATARACT [None]
  - OSTEOPENIA [None]
  - VISION BLURRED [None]
